FAERS Safety Report 9648939 (Version 2)
Quarter: 2013Q4

REPORT INFORMATION
  Report Type: Report from Study
  Country: CA (occurrence: CA)
  Receive Date: 20131028
  Receipt Date: 20131028
  Transmission Date: 20140711
  Serious: Yes (Hospitalization)
  Sender: FDA-Public Use
  Company Number: CA-ABBVIE-13X-028-1141509-00

PATIENT
  Age: 84 Year
  Sex: Female

DRUGS (3)
  1. MAVIK [Suspect]
     Indication: HYPERTENSION
     Route: 048
     Dates: start: 20130807
  2. MAVIK [Suspect]
     Route: 048
     Dates: start: 20130819
  3. MULTIVITAMIN [Concomitant]
     Indication: PRODUCT USED FOR UNKNOWN INDICATION
     Dosage: YEARS

REACTIONS (12)
  - Pulmonary embolism [Not Recovered/Not Resolved]
  - Circulatory collapse [Not Recovered/Not Resolved]
  - Hypertension [Not Recovered/Not Resolved]
  - Tachycardia [Not Recovered/Not Resolved]
  - Cardiac failure congestive [Unknown]
  - Atrial fibrillation [Unknown]
  - Orthostatic hypotension [Unknown]
  - Palpitations [Unknown]
  - Fatigue [Unknown]
  - Blood pressure decreased [Unknown]
  - Syncope [Unknown]
  - Dyspnoea [Unknown]
